FAERS Safety Report 15866237 (Version 1)
Quarter: 2019Q1

REPORT INFORMATION
  Report Type: Spontaneous
  Country: US (occurrence: US)
  Receive Date: 20190125
  Receipt Date: 20190125
  Transmission Date: 20190417
  Serious: No
  Sender: FDA-Public Use
  Company Number: US-PFIZER INC-2019025457

PATIENT
  Age: 26 Year
  Sex: Female
  Weight: 90.72 kg

DRUGS (1)
  1. SERTRALINE HCL [Suspect]
     Active Substance: SERTRALINE HYDROCHLORIDE
     Indication: PERINATAL DEPRESSION
     Dosage: 100 MG, 1X/DAY
     Route: 048
     Dates: start: 20190110, end: 20190112

REACTIONS (12)
  - Incorrect dose administered [Unknown]
  - Dizziness [Recovered/Resolved]
  - Somnolence [Unknown]
  - Feeling abnormal [Recovered/Resolved]
  - Product dispensing error [Recovered/Resolved]
  - Apathy [Recovered/Resolved]
  - Decreased appetite [Recovered/Resolved]
  - Balance disorder [Recovered/Resolved]
  - Fall [Recovered/Resolved]
  - Headache [Recovered/Resolved]
  - Anxiety [Recovered/Resolved]
  - Withdrawal syndrome [Unknown]

NARRATIVE: CASE EVENT DATE: 20190110
